FAERS Safety Report 8791520 (Version 1)
Quarter: 2012Q4

REPORT INFORMATION
  Report Type: Spontaneous
  Country: US (occurrence: None)
  Receive Date: 20120913
  Receipt Date: 20120913
  Transmission Date: 20130627
  Serious: Yes (Life-Threatening)
  Sender: FDA-Public Use
  Company Number: 001351507A

PATIENT
  Sex: Male

DRUGS (5)
  1. PROACTIV RENEWING CLEANSER [Suspect]
     Indication: ACNE
     Route: 059
     Dates: start: 20120823, end: 20120824
  2. PROACTIV REPAIRING TREATMENT [Suspect]
     Indication: ACNE
     Route: 059
     Dates: start: 20120823, end: 20120824
  3. PROACTIV REFINING MASK [Suspect]
     Indication: ACNE
     Route: 059
     Dates: start: 20120823, end: 20120824
  4. PROACTIV DEEP CLEANSING WASH [Suspect]
     Indication: ACNE
     Route: 059
     Dates: start: 20120823, end: 20120824
  5. PROACTIV ADVANCED BLEMISH TREATMENT [Suspect]
     Indication: ACNE
     Route: 059
     Dates: start: 20120823, end: 20120824

REACTIONS (1)
  - Anaphylactic reaction [None]
